FAERS Safety Report 7444651-9 (Version None)
Quarter: 2011Q2

REPORT INFORMATION
  Report Type: 
  Country: None (occurrence: None)
  Receive Date: 20110429
  Receipt Date: 20110427
  Transmission Date: 20111010
  Serious: No
  Sender: FDA-Public Use
  Company Number: US-PFIZER INC-2011091989

PATIENT
  Sex: Female
  Weight: 63.49 kg

DRUGS (4)
  1. PANTOPRAZOLE [Concomitant]
     Dosage: 50 MG, DAILY
     Route: 048
  2. LIPITOR [Concomitant]
     Dosage: 50 MG, DAILY
     Route: 048
  3. CHANTIX [Suspect]
     Indication: SMOKING CESSATION THERAPY
     Dosage: UNK
     Route: 048
     Dates: start: 20110101, end: 20110101
  4. LISINOPRIL [Concomitant]
     Dosage: 50 MG, DAILY
     Route: 048

REACTIONS (1)
  - DIZZINESS [None]
